FAERS Safety Report 4851425-1 (Version None)
Quarter: 2005Q4

REPORT INFORMATION
  Report Type: 
  Country: None (occurrence: None)
  Receive Date: 20051208
  Receipt Date: 20051118
  Transmission Date: 20060501
  Serious: Yes (Life-Threatening, Hospitalization, Disabling)
  Sender: FDA-Public Use
  Company Number: WAES 0510HUN00014

PATIENT
  Age: 70 Year
  Sex: Male

DRUGS (8)
  1. COZAAR [Suspect]
     Indication: CARDIAC FAILURE
     Dates: start: 20031125
  2. ALLOPURINOL [Concomitant]
  3. AMLODIPINE MALEATE [Concomitant]
  4. ATORVASTATIN CALCIUM [Concomitant]
  5. FUROSEMIDE [Concomitant]
  6. POTASSIUM [Concomitant]
  7. SPIRONOLACTOME [Concomitant]
  8. WARFARIN [Concomitant]

REACTIONS (4)
  - BLOOD GLUCOSE INCREASED [None]
  - BLOOD POTASSIUM INCREASED [None]
  - POSTOPERATIVE WOUND COMPLICATION [None]
  - PULMONARY TUBERCULOSIS [None]
